FAERS Safety Report 25506173 (Version 4)
Quarter: 2025Q4

REPORT INFORMATION
  Report Type: Spontaneous
  Country: US (occurrence: US)
  Receive Date: 20250702
  Receipt Date: 20251127
  Transmission Date: 20260118
  Serious: No
  Sender: SANOFI AVENTIS
  Company Number: US-SA-2025SA185757

PATIENT
  Age: 42 Year
  Sex: Male

DRUGS (2)
  1. ELOCTATE [Suspect]
     Active Substance: EFMOROCTOCOG ALFA
     Indication: Factor VIII deficiency
     Dosage: 4000 IU (3600-4400) SLOW IV PUSH, Q4D AND AS NEEDED
     Route: 042
     Dates: start: 201507
  2. ELOCTATE [Suspect]
     Active Substance: EFMOROCTOCOG ALFA
     Indication: Factor VIII deficiency
     Dosage: 4000 IU (3600-4400) SLOW IV PUSH, Q4D AND AS NEEDED
     Route: 042
     Dates: start: 201507

REACTIONS (2)
  - Haemorrhage [Unknown]
  - Vein disorder [Unknown]

NARRATIVE: CASE EVENT DATE: 20250701
